FAERS Safety Report 7287949-X (Version None)
Quarter: 2011Q1

REPORT INFORMATION
  Report Type: 
  Country: None (occurrence: None)
  Receive Date: 20110208
  Receipt Date: 20110208
  Transmission Date: 20110831
  Serious: Yes (Hospitalization)
  Sender: FDA-Public Use
  Company Number: None

PATIENT
  Age: 91 Year
  Sex: Female
  Weight: 92.0802 kg

DRUGS (2)
  1. ASPIRIN [Concomitant]
  2. DABIGATRAN 75MG BOEHRINGER-INGELHEIM [Suspect]
     Indication: ATRIAL FIBRILLATION
     Dosage: 75MG TWICE DAILY PO
     Route: 048
     Dates: start: 20110110, end: 20110123

REACTIONS (1)
  - LOWER GASTROINTESTINAL HAEMORRHAGE [None]
